FAERS Safety Report 14235294 (Version 2)
Quarter: 2017Q4

REPORT INFORMATION
  Report Type: Spontaneous
  Country: US (occurrence: US)
  Receive Date: 20171129
  Receipt Date: 20171223
  Transmission Date: 20180321
  Serious: Yes (Hospitalization)
  Sender: FDA-Public Use
  Company Number: US-ABBVIE-17P-163-2172857-00

PATIENT
  Age: 53 Year
  Sex: Female
  Weight: 60 kg

DRUGS (1)
  1. LEVOTHYROXINE. [Suspect]
     Active Substance: LEVOTHYROXINE
     Indication: HYPOTHYROIDISM
     Dosage: 100 ?G, UNK
     Route: 048

REACTIONS (10)
  - Dizziness postural [Recovered/Resolved]
  - Fatigue [Not Recovered/Not Resolved]
  - Product physical consistency issue [Unknown]
  - Vomiting [Recovering/Resolving]
  - Hypothyroidism [Recovering/Resolving]
  - Gait disturbance [Recovered/Resolved]
  - Nausea [Recovering/Resolving]
  - Headache [Recovering/Resolving]
  - Condition aggravated [Unknown]
  - Asthenia [Not Recovered/Not Resolved]

NARRATIVE: CASE EVENT DATE: 20170915
